FAERS Safety Report 5340243-6 (Version None)
Quarter: 2007Q2

REPORT INFORMATION
  Report Type: 
  Country: None (occurrence: None)
  Receive Date: 20070531
  Receipt Date: 20070524
  Transmission Date: 20071010
  Serious: Yes (Other)
  Sender: FDA-Public Use
  Company Number: HQWYE337924MAY07

PATIENT

DRUGS (1)
  1. CORDARONE [Suspect]
     Indication: ATRIAL FIBRILLATION
     Dosage: NOT PROVIDED
     Route: 065
     Dates: start: 20070101

REACTIONS (2)
  - EMBOLISM [None]
  - PAPILLOEDEMA [None]
